FAERS Safety Report 19098352 (Version 1)
Quarter: 2021Q2

REPORT INFORMATION
  Report Type: Spontaneous
  Country: IN (occurrence: IN)
  Receive Date: 20210406
  Receipt Date: 20210406
  Transmission Date: 20210717
  Serious: Yes (Hospitalization)
  Sender: FDA-Public Use
  Company Number: NVSC2021IN075392

PATIENT
  Age: 65 Year
  Sex: Male

DRUGS (6)
  1. RAMIPRIL. [Concomitant]
     Active Substance: RAMIPRIL
     Indication: FOCAL SEGMENTAL GLOMERULOSCLEROSIS
  2. TORSEMIDE. [Concomitant]
     Active Substance: TORSEMIDE
     Indication: NEPHROTIC SYNDROME
     Dosage: 20 MG, QD
     Route: 065
  3. TACROLIMUS. [Suspect]
     Active Substance: TACROLIMUS
     Indication: FOCAL SEGMENTAL GLOMERULOSCLEROSIS
  4. RAMIPRIL. [Concomitant]
     Active Substance: RAMIPRIL
     Indication: NEPHROTIC SYNDROME
     Dosage: 5 MG, QD
     Route: 065
  5. TORSEMIDE. [Concomitant]
     Active Substance: TORSEMIDE
     Indication: FOCAL SEGMENTAL GLOMERULOSCLEROSIS
  6. TACROLIMUS. [Suspect]
     Active Substance: TACROLIMUS
     Indication: NEPHROTIC SYNDROME
     Dosage: 2.5 MG, BID
     Route: 065

REACTIONS (2)
  - Product use in unapproved indication [Unknown]
  - Mania [Recovered/Resolved]
